FAERS Safety Report 8860605 (Version 1)
Quarter: 2012Q4

REPORT INFORMATION
  Report Type: 
  Country: US (occurrence: US)
  Receive Date: 20121025
  Receipt Date: 20121025
  Transmission Date: 20130627
  Serious: Yes (Other)
  Sender: FDA-Public Use
  Company Number: US-TEVA-366320USA

PATIENT
  Sex: Female

DRUGS (2)
  1. PRAZOSIN [Suspect]
     Dosage: 4 Milligram Daily;
  2. PROMACTA [Interacting]

REACTIONS (3)
  - Drug interaction [Unknown]
  - Platelet count decreased [Unknown]
  - Platelet count increased [Unknown]
